FAERS Safety Report 6880667-9 (Version None)
Quarter: 2010Q3

REPORT INFORMATION
  Report Type: 
  Country: None (occurrence: None)
  Receive Date: 20100728
  Receipt Date: 20100719
  Transmission Date: 20110219
  Serious: Yes (Hospitalization)
  Sender: FDA-Public Use
  Company Number: US-BIOGENIDEC-2010BI025410

PATIENT
  Age: 39 Year
  Sex: Male
  Weight: 97 kg

DRUGS (4)
  1. AVONEX [Suspect]
     Indication: MULTIPLE SCLEROSIS
     Route: 030
     Dates: start: 19970101, end: 20010101
  2. AVONEX [Suspect]
     Route: 030
     Dates: start: 20020101, end: 20050101
  3. KLONOPIN [Concomitant]
     Indication: MUSCLE SPASMS
  4. LEXAPRO [Concomitant]
     Indication: ANXIETY

REACTIONS (2)
  - MULTIPLE SCLEROSIS RELAPSE [None]
  - MUSCLE ATROPHY [None]
